FAERS Safety Report 6266943-1 (Version None)
Quarter: 2009Q3

REPORT INFORMATION
  Report Type: 
  Country: None (occurrence: None)
  Receive Date: 20090714
  Receipt Date: 20090610
  Transmission Date: 20100115
  Serious: Yes (Other)
  Sender: FDA-Public Use
  Company Number: US-JNJCH-2009014681

PATIENT
  Age: 24 Year
  Sex: Female
  Weight: 61.2 kg

DRUGS (2)
  1. VISINE-A [Suspect]
     Indication: OCULAR HYPERAEMIA
     Dosage: TEXT:1 DROP IN EYE ONCE
     Route: 047
     Dates: start: 20090526, end: 20090526
  2. CONTRACEPTIVE, UNSPECIFIED [Concomitant]
     Indication: DRUG USE FOR UNKNOWN INDICATION
     Dosage: TEXT:UNSPECIFIED
     Route: 065

REACTIONS (2)
  - APPLICATION SITE BURN [None]
  - MYDRIASIS [None]
